FAERS Safety Report 25542938 (Version 1)
Quarter: 2025Q3

REPORT INFORMATION
  Report Type: Spontaneous
  Country: CN (occurrence: CN)
  Receive Date: 20250711
  Receipt Date: 20250711
  Transmission Date: 20251021
  Serious: Yes (Death, Other)
  Sender: JOHNSON AND JOHNSON
  Company Number: CN-JNJFOC-20250713296

PATIENT
  Age: 60 Year
  Sex: Male

DRUGS (7)
  1. RIVAROXABAN [Suspect]
     Active Substance: RIVAROXABAN
     Indication: Anticoagulant therapy
     Dosage: 1.5 MG, QD
     Dates: start: 20240312, end: 20240315
  2. RIVAROXABAN [Suspect]
     Active Substance: RIVAROXABAN
     Indication: Hepatic vascular thrombosis
  3. MAGNESIUM ISOGLYCYRRHIZINATE [Concomitant]
     Active Substance: MAGNESIUM ISOGLYCYRRHIZINATE
     Indication: Product used for unknown indication
     Dosage: 100 MG, QD
     Dates: start: 20240312
  4. ACETYLCYSTEINE [Concomitant]
     Active Substance: ACETYLCYSTEINE
     Indication: Product used for unknown indication
     Dosage: 8 G, QD
     Dates: start: 20240312
  5. PHOSPHOLIPID [Concomitant]
     Active Substance: PHOSPHOLIPID
     Indication: Product used for unknown indication
     Dosage: 696.5 MG, QD
     Dates: start: 20240304, end: 20240311
  6. PHOSPHOLIPID [Concomitant]
     Active Substance: PHOSPHOLIPID
     Dosage: 465 MG, BID
     Dates: start: 20240312
  7. ALPROSTADIL [Concomitant]
     Active Substance: ALPROSTADIL
     Indication: Product used for unknown indication
     Dosage: 10 UG, QD
     Dates: start: 20240312

REACTIONS (8)
  - Multiple organ dysfunction syndrome [Fatal]
  - Renal impairment [Unknown]
  - Transaminases increased [Unknown]
  - Blood bilirubin increased [Unknown]
  - Coagulopathy [Unknown]
  - Product use in unapproved indication [Unknown]
  - Product prescribing issue [Unknown]
  - Pyrexia [Recovered/Resolved]

NARRATIVE: CASE EVENT DATE: 20240301
